FAERS Safety Report 8174700-4 (Version None)
Quarter: 2012Q1

REPORT INFORMATION
  Report Type: 
  Country: None (occurrence: None)
  Receive Date: 20120229
  Receipt Date: 20120222
  Transmission Date: 20120608
  Serious: Yes (Other)
  Sender: FDA-Public Use
  Company Number: CA-GLAXOSMITHKLINE-A0967060A

PATIENT
  Sex: Female

DRUGS (10)
  1. TYKERB [Suspect]
     Indication: BREAST CANCER METASTATIC
     Dosage: 1250MG PER DAY
     Route: 048
     Dates: start: 20111122
  2. IMODIUM [Concomitant]
  3. DOCUSATE [Concomitant]
  4. SENOKOT [Concomitant]
  5. EFFEXOR [Concomitant]
  6. LYRICA [Concomitant]
  7. VITAMIN D [Concomitant]
  8. DILAUDID [Concomitant]
  9. XELODA [Suspect]
     Indication: BREAST CANCER METASTATIC
     Route: 065
  10. ACETAMINOPHEN [Concomitant]

REACTIONS (1)
  - BREAST CANCER METASTATIC [None]
